FAERS Safety Report 9846684 (Version 1)
Quarter: 2014Q1

REPORT INFORMATION
  Report Type: Spontaneous
  Country: CA (occurrence: CA)
  Receive Date: 20140127
  Receipt Date: 20140127
  Transmission Date: 20141002
  Serious: Yes (Other)
  Sender: FDA-Public Use
  Company Number: PHHY2014CA008139

PATIENT
  Age: 55 Year
  Sex: Female

DRUGS (3)
  1. RASILEZ [Suspect]
     Dosage: 1 DF, UNK
     Route: 048
  2. HYDROCHLOROTHIAZIDE [Concomitant]
     Dosage: UNK UKN, UNK
  3. NEXIUM//ESOMEPRAZOLE SODIUM [Concomitant]
     Dosage: UNK UKN, UNK

REACTIONS (1)
  - Renal pain [Recovered/Resolved]
